FAERS Safety Report 21474455 (Version 1)
Quarter: 2022Q4

REPORT INFORMATION
  Report Type: Spontaneous
  Country: FR (occurrence: FR)
  Receive Date: 20221018
  Receipt Date: 20221018
  Transmission Date: 20230113
  Serious: Yes (Hospitalization)
  Sender: FDA-Public Use
  Company Number: None

PATIENT
  Age: 86 Year
  Sex: Female
  Weight: 68.6 kg

DRUGS (1)
  1. KEYTRUDA [Suspect]
     Active Substance: PEMBROLIZUMAB
     Indication: Lung adenocarcinoma
     Dosage: PER TREATMENT
     Route: 042
     Dates: start: 20220721, end: 20220811

REACTIONS (3)
  - Myocarditis [Recovering/Resolving]
  - Blood creatine phosphokinase increased [Recovered/Resolved]
  - Hepatocellular injury [Recovered/Resolved]
